FAERS Safety Report 8998890 (Version 3)
Quarter: 2013Q3

REPORT INFORMATION
  Report Type: Spontaneous
  Country: US (occurrence: US)
  Receive Date: 20130103
  Receipt Date: 20130919
  Transmission Date: 20140515
  Serious: Yes (Other)
  Sender: FDA-Public Use
  Company Number: US-PFIZER INC-2013001658

PATIENT
  Age: 61 Year
  Sex: Male
  Weight: 72.56 kg

DRUGS (2)
  1. LYRICA [Suspect]
     Indication: NEURALGIA
     Dosage: 75 MG, 3X/DAY
  2. AMITRIPTYLINE [Concomitant]
     Indication: DEPRESSION
     Dosage: 75 MG, 3X/DAY

REACTIONS (5)
  - Arthropathy [Unknown]
  - Malaise [Unknown]
  - Disturbance in attention [Unknown]
  - Pain [Unknown]
  - Mental disorder [Unknown]
